FAERS Safety Report 19148528 (Version 2)
Quarter: 2022Q3

REPORT INFORMATION
  Report Type: Spontaneous
  Country: NL (occurrence: NL)
  Receive Date: 20210416
  Receipt Date: 20220912
  Transmission Date: 20221027
  Serious: Yes (Other)
  Sender: FDA-Public Use
  Company Number: NL-JNJFOC-20210410859

PATIENT
  Sex: Male

DRUGS (5)
  1. HALDOL [Suspect]
     Active Substance: HALOPERIDOL
     Indication: Abnormal behaviour
     Route: 048
  2. CONCERTA [Suspect]
     Active Substance: METHYLPHENIDATE HYDROCHLORIDE
     Indication: Autism spectrum disorder
     Route: 065
  3. RISPERDAL [Suspect]
     Active Substance: RISPERIDONE
     Indication: Autism spectrum disorder
     Route: 065
  4. PROMETHAZINE [Suspect]
     Active Substance: PROMETHAZINE HYDROCHLORIDE
  5. PHENOBARBITAL [Suspect]
     Active Substance: PHENOBARBITAL

REACTIONS (7)
  - Urinary incontinence [Unknown]
  - Aggression [Unknown]
  - Psychomotor hyperactivity [Unknown]
  - Headache [Unknown]
  - Vomiting [Unknown]
  - Muscle spasms [Unknown]
  - Gait disturbance [Unknown]
